FAERS Safety Report 17798481 (Version 1)
Quarter: 2020Q2

REPORT INFORMATION
  Report Type: Spontaneous
  Country: GB (occurrence: GB)
  Receive Date: 20200518
  Receipt Date: 20200518
  Transmission Date: 20200714
  Serious: Yes (Disabling)
  Sender: FDA-Public Use
  Company Number: GB-TEVA-2020-GB-1235609

PATIENT
  Age: 56 Year
  Sex: Male

DRUGS (11)
  1. ARIPIPRAZOLE. [Suspect]
     Active Substance: ARIPIPRAZOLE
     Dosage: 5 MILLIGRAM
     Route: 048
  2. BUMETANIDE. [Concomitant]
     Active Substance: BUMETANIDE
  3. TRAMADOL. [Concomitant]
     Active Substance: TRAMADOL
  4. BISOPROLOL FUMARATE. [Concomitant]
     Active Substance: BISOPROLOL FUMARATE
  5. ATORVASTATIN [Concomitant]
     Active Substance: ATORVASTATIN
  6. IVABRADINE [Concomitant]
     Active Substance: IVABRADINE
  7. EPLERENONE. [Concomitant]
     Active Substance: EPLERENONE
  8. ACETYLSALICYLIC ACID [Concomitant]
     Active Substance: ASPIRIN
  9. PROCYCLIDINE [Concomitant]
     Active Substance: PROCYCLIDINE
  10. RAMIPRIL. [Concomitant]
     Active Substance: RAMIPRIL
  11. NORTRIPTYLINE [Concomitant]
     Active Substance: NORTRIPTYLINE

REACTIONS (1)
  - Congestive cardiomyopathy [Unknown]
